FAERS Safety Report 7851620-3 (Version None)
Quarter: 2011Q4

REPORT INFORMATION
  Report Type: 
  Country: None (occurrence: None)
  Receive Date: 20111026
  Receipt Date: 20111021
  Transmission Date: 20120403
  Serious: Yes (Hospitalization)
  Sender: FDA-Public Use
  Company Number: US-ROCHE-1006540

PATIENT
  Sex: Female

DRUGS (1)
  1. ZELBORAF [Suspect]
     Indication: PRODUCT USED FOR UNKNOWN INDICATION
     Route: 065

REACTIONS (5)
  - MALIGNANT MELANOMA [None]
  - INCONTINENCE [None]
  - WHITE BLOOD CELL COUNT DECREASED [None]
  - BRAIN OEDEMA [None]
  - URINARY TRACT INFECTION [None]
